FAERS Safety Report 11773004 (Version 1)
Quarter: 2015Q4

REPORT INFORMATION
  Report Type: Spontaneous
  Country: FR (occurrence: FR)
  Receive Date: 20151124
  Receipt Date: 20151124
  Transmission Date: 20160304
  Serious: Yes (Other)
  Sender: FDA-Public Use
  Company Number: PHHY2015FR152593

PATIENT
  Age: 7 Year
  Sex: Female
  Weight: 27 kg

DRUGS (13)
  1. PERFALGAN [Concomitant]
     Active Substance: ACETAMINOPHEN
     Indication: PRODUCT USED FOR UNKNOWN INDICATION
     Dosage: 400 OT, Q6H  (PERFUSION)
     Route: 042
     Dates: start: 20140724, end: 20140730
  2. NESDONAL [Concomitant]
     Active Substance: THIOPENTAL SODIUM
     Indication: STATUS EPILEPTICUS
     Dosage: UNK
     Route: 065
  3. NIMBEX//CISATRACURIUM BESILATE [Concomitant]
     Indication: PRODUCT USED FOR UNKNOWN INDICATION
     Dosage: 5 MG, QD (BOLUS)
     Route: 042
     Dates: start: 20140725, end: 20140726
  4. BACTRIM [Concomitant]
     Active Substance: SULFAMETHOXAZOLE\TRIMETHOPRIM
     Indication: PRODUCT USED FOR UNKNOWN INDICATION
     Dosage: 400 MG, Q12H
     Route: 048
     Dates: start: 20140719, end: 20140726
  5. SUFENTANIL AGUETTANT [Concomitant]
     Indication: STATUS EPILEPTICUS
     Dosage: 0.08 UG/KG, QH
     Route: 042
     Dates: start: 20140713, end: 20140724
  6. HYPNOVEL [Concomitant]
     Active Substance: MIDAZOLAM\MIDAZOLAM HYDROCHLORIDE
     Indication: STATUS EPILEPTICUS
     Dosage: 0.66 MG/KG PER HOUR (INTRAVENOUS PERFUSION)
     Route: 042
     Dates: start: 20140718, end: 20140825
  7. SABRIL [Concomitant]
     Active Substance: VIGABATRIN
     Indication: STATUS EPILEPTICUS
     Dosage: 500 MG, Q12H
     Route: 065
     Dates: start: 20140719, end: 20140803
  8. GARDENAL//PHENOBARBITAL [Concomitant]
     Active Substance: PHENOBARBITAL
     Indication: MYOCLONUS
     Dosage: UNK
     Route: 065
     Dates: start: 20140727, end: 20140730
  9. TEGRETOL [Suspect]
     Active Substance: CARBAMAZEPINE
     Indication: STATUS EPILEPTICUS
     Dosage: 600 MG, BID
     Route: 048
     Dates: start: 20140717
  10. DIACOMIT [Concomitant]
     Active Substance: STIRIPENTOL
     Indication: STATUS EPILEPTICUS
     Dosage: 2 DF, BID
     Route: 048
     Dates: start: 20140723
  11. VANCOMYCIN [Concomitant]
     Active Substance: VANCOMYCIN
     Indication: PRODUCT USED FOR UNKNOWN INDICATION
     Dosage: 400 MG, Q6H, BOLUS (POWDER FOR SOLUTION FOR PERFUSION)
     Route: 042
     Dates: start: 20140723, end: 20140726
  12. KEPPRA [Concomitant]
     Active Substance: LEVETIRACETAM
     Indication: STATUS EPILEPTICUS
     Dosage: 750 MG, BID
     Route: 048
     Dates: start: 20140713, end: 20140724
  13. VIMPAT [Concomitant]
     Active Substance: LACOSAMIDE
     Indication: STATUS EPILEPTICUS
     Dosage: UNK
     Route: 065
     Dates: start: 20140818

REACTIONS (3)
  - Hypophosphataemia [Recovering/Resolving]
  - Hyponatraemia [Recovering/Resolving]
  - Hypokalaemia [Recovering/Resolving]

NARRATIVE: CASE EVENT DATE: 20140726
